FAERS Safety Report 5712280-0 (Version None)
Quarter: 2008Q2

REPORT INFORMATION
  Report Type: 
  Country: None (occurrence: None)
  Receive Date: 20080418
  Receipt Date: 20080410
  Transmission Date: 20081010
  Serious: Yes (Other)
  Sender: FDA-Public Use
  Company Number: OPER20080049

PATIENT
  Age: 55 Year
  Sex: Female
  Weight: 99.7913 kg

DRUGS (9)
  1. OPANA ER [Suspect]
     Indication: PAIN
     Dosage: 20 MG, 1 TAB BID, PER ORAL
     Route: 048
     Dates: start: 20060901, end: 20080101
  2. OPANA ER [Suspect]
     Indication: PAIN
     Dosage: 10 MG, 1 TAB TID, PER ORAL
     Route: 048
     Dates: start: 20080101, end: 20080201
  3. METHADONE HCL [Concomitant]
  4. OXYCODONE HCL [Concomitant]
  5. WARFARIN SODIUM [Concomitant]
  6. ATENOLOL [Concomitant]
  7. LASIX [Concomitant]
  8. OPANA ER [Suspect]
     Indication: PAIN
     Dosage: 10 MG, 1 TAB BID, PER ORAL
     Route: 048
     Dates: start: 20080201, end: 20080301
  9. OPANA ER [Suspect]
     Indication: PAIN
     Dosage: 10 MG, 1 TAB DAILY, PER ORAL
     Route: 048
     Dates: start: 20080301, end: 20080401

REACTIONS (12)
  - ABDOMINAL PAIN [None]
  - BACK PAIN [None]
  - CHEST DISCOMFORT [None]
  - CONDITION AGGRAVATED [None]
  - DISTURBANCE IN ATTENTION [None]
  - DRUG EFFECT DECREASED [None]
  - DRUG WITHDRAWAL SYNDROME [None]
  - INFLUENZA LIKE ILLNESS [None]
  - INSOMNIA [None]
  - JOINT SWELLING [None]
  - SOMNOLENCE [None]
  - STOMACH DISCOMFORT [None]
